FAERS Safety Report 5223339-9 (Version None)
Quarter: 2007Q1

REPORT INFORMATION
  Report Type: 
  Country: None (occurrence: None)
  Receive Date: 20061201
  Receipt Date: 20060925
  Transmission Date: 20070707
  Serious: No
  Sender: FDA-Public Use
  Company Number: 2005PV002465

PATIENT
  Age: 36 Year
  Sex: Male
  Weight: 87.0906 kg

DRUGS (9)
  1. BYETTA [Suspect]
     Indication: DIABETES MELLITUS NON-INSULIN-DEPENDENT
     Dosage: SEE  IMAGE
     Route: 058
     Dates: start: 20050601, end: 20050701
  2. BYETTA [Suspect]
     Indication: DIABETES MELLITUS NON-INSULIN-DEPENDENT
     Dosage: SEE  IMAGE
     Route: 058
     Dates: start: 20050801
  3. BYETTA [Suspect]
  4. GLUCOPHAGE [Concomitant]
  5. LIPITOR [Concomitant]
  6. TRICOR [Concomitant]
  7. COZAAR [Concomitant]
  8. FORTAMET [Concomitant]
  9. LANTUS [Concomitant]

REACTIONS (10)
  - ACNE [None]
  - BLOOD GLUCOSE DECREASED [None]
  - BLOOD GLUCOSE INCREASED [None]
  - BLOOD TESTOSTERONE INCREASED [None]
  - COUGH [None]
  - DECREASED APPETITE [None]
  - DRUG EFFECT DECREASED [None]
  - LIBIDO INCREASED [None]
  - RHINORRHOEA [None]
  - WEIGHT DECREASED [None]
